FAERS Safety Report 8437154-6 (Version None)
Quarter: 2012Q2

REPORT INFORMATION
  Report Type: 
  Country: None (occurrence: None)
  Receive Date: 20120614
  Receipt Date: 20120425
  Transmission Date: 20120825
  Serious: No
  Sender: FDA-Public Use
  Company Number: US-AMGEN-USASP2012019481

PATIENT
  Age: 51 Year
  Sex: Female
  Weight: 58 kg

DRUGS (6)
  1. CELLCEPT [Concomitant]
     Indication: HEART TRANSPLANT
     Dosage: 250 MG, BID
     Route: 048
     Dates: start: 20080401
  2. SLOW-MAG [Concomitant]
     Indication: ARRHYTHMIA
     Dosage: 64 MG, BID
     Route: 048
     Dates: start: 19960101
  3. LOVENOX [Concomitant]
     Indication: PULMONARY EMBOLISM
     Dosage: 60 MG, BID
     Route: 058
     Dates: start: 20110601
  4. PROLIA [Suspect]
     Indication: OSTEOPOROSIS POSTMENOPAUSAL
     Dosage: 60 MG, Q6MO
     Route: 058
     Dates: start: 20111020
  5. PREDNISONE TAB [Concomitant]
     Indication: HEART TRANSPLANT
     Dosage: 5 G, BID
     Route: 048
     Dates: start: 19960101
  6. LISINOPRIL [Concomitant]
     Indication: CARDIAC FAILURE CONGESTIVE
     Dosage: UNK UNK, QD
     Route: 048
     Dates: start: 19960101

REACTIONS (3)
  - BACK PAIN [None]
  - MALAISE [None]
  - ASTHENIA [None]
